FAERS Safety Report 25460885 (Version 1)
Quarter: 2025Q2

REPORT INFORMATION
  Report Type: Spontaneous
  Country: US (occurrence: US)
  Receive Date: 20250620
  Receipt Date: 20250620
  Transmission Date: 20250717
  Serious: Yes (Other)
  Sender: TEVA
  Company Number: US-TEVA-VS-3342405

PATIENT
  Age: 66 Year
  Sex: Female
  Weight: 88.904 kg

DRUGS (1)
  1. LEVALBUTEROL [Suspect]
     Active Substance: LEVALBUTEROL
     Indication: Asthma
     Route: 065

REACTIONS (3)
  - Wrist fracture [Not Recovered/Not Resolved]
  - Burning sensation [Not Recovered/Not Resolved]
  - Incorrect dose administered [Unknown]

NARRATIVE: CASE EVENT DATE: 20250613
